FAERS Safety Report 15080301 (Version 1)
Quarter: 2018Q2

REPORT INFORMATION
  Report Type: Spontaneous
  Country: GB (occurrence: GB)
  Receive Date: 20180628
  Receipt Date: 20180628
  Transmission Date: 20180711
  Serious: Yes (Other)
  Sender: FDA-Public Use
  Company Number: GB-TEVA-2018-GB-912885

PATIENT
  Age: 87 Year
  Sex: Female
  Weight: 71 kg

DRUGS (18)
  1. SPIRIVA [Concomitant]
     Active Substance: TIOTROPIUM BROMIDE MONOHYDRATE
     Dosage: 2 DOSAGE FORMS DAILY; PUFFS
     Route: 055
     Dates: start: 20180221, end: 20180323
  2. AVAMYS [Concomitant]
     Active Substance: FLUTICASONE FUROATE
     Dosage: 1 DOSAGE FORMS DAILY;
     Route: 065
     Dates: start: 20170320
  3. CETIRIZINE [Concomitant]
     Active Substance: CETIRIZINE HYDROCHLORIDE
     Dosage: 1 DOSAGE FORMS DAILY;
     Route: 065
     Dates: start: 20130128, end: 20180515
  4. HYDROCORTISONE. [Concomitant]
     Active Substance: HYDROCORTISONE
     Dosage: 2 DOSAGE FORMS DAILY; APPLY
     Route: 065
     Dates: start: 20080429
  5. ESTRIOL [Concomitant]
     Active Substance: ESTRIOL
     Dosage: 1 DOSAGE FORMS DAILY; APPLY AT NIGHT.
     Route: 065
     Dates: start: 20170503
  6. SALBUTAMOL [Concomitant]
     Active Substance: ALBUTEROL
     Dosage: 1-2 PUFFS UP TO FOUR TIMES A DAY.
     Route: 055
     Dates: start: 20120917
  7. COCODAMOL [Concomitant]
     Active Substance: ACETAMINOPHEN\CODEINE PHOSPHATE
     Dosage: 1 OR 2 4 TIMES/DAY
     Route: 065
     Dates: start: 20140807
  8. DOXYCYCLINE. [Concomitant]
     Active Substance: DOXYCYCLINE
     Dosage: 12 DOSAGE FORMS DAILY; 2 ON FIRST DOSE.
     Route: 065
     Dates: start: 20180425, end: 20180425
  9. ASACOL [Concomitant]
     Active Substance: MESALAMINE
     Dosage: 1-2 THREE TIMES A DAY AS DIRECTED BY HOSPITAL
     Route: 065
     Dates: start: 20120619
  10. FOSTAIR [Concomitant]
     Active Substance: BECLOMETHASONE\FORMOTEROL
     Dosage: 4 DOSAGE FORMS DAILY; PUFFS
     Route: 055
     Dates: start: 20160517
  11. HYDROMOL CREAM [Concomitant]
     Dosage: APPLY TWICE A DAY AS A SKIN MOISTURISER
     Route: 065
     Dates: start: 20170419
  12. CALCICHEW D3 [Concomitant]
     Active Substance: CALCIUM\CHOLECALCIFEROL
     Dosage: 2 DOSAGE FORMS DAILY;
     Route: 065
     Dates: start: 20161114
  13. CODEINE PHOSPHATE [Concomitant]
     Active Substance: CODEINE PHOSPHATE
     Dosage: 4 DOSAGE FORMS DAILY;
     Route: 065
     Dates: start: 20180302, end: 20180309
  14. FENBID [Concomitant]
     Active Substance: IBUPROFEN
     Dosage: APPLY UP TO FOUR TIMES A DAY.
     Route: 065
     Dates: start: 20171221
  15. CETRABEN EMOLLIENT CREAM [Concomitant]
     Dosage: USE AS A SOAP SUBSTITUTE
     Route: 065
     Dates: start: 20150428
  16. LANSOPRAZOLE. [Concomitant]
     Active Substance: LANSOPRAZOLE
     Dosage: 1 DOSAGE FORMS DAILY;
     Route: 065
     Dates: start: 20101215
  17. AMITRIPTYLINE HYDROCHLORIDE. [Concomitant]
     Active Substance: AMITRIPTYLINE HYDROCHLORIDE
     Dosage: 1 DOSAGE FORMS DAILY; NIGHT
     Route: 065
     Dates: start: 20130924, end: 20180515
  18. LEVOFLOXACIN TABLETS, 250 MG, 500 MG AND 750 MG [Suspect]
     Active Substance: LEVOFLOXACIN
     Route: 065
     Dates: start: 20180426

REACTIONS (5)
  - Neck pain [Unknown]
  - Memory impairment [Unknown]
  - Haematochezia [Recovered/Resolved]
  - Blister [Recovered/Resolved]
  - Musculoskeletal pain [Unknown]

NARRATIVE: CASE EVENT DATE: 20180426
